FAERS Safety Report 8688766 (Version 3)
Quarter: 2012Q4

REPORT INFORMATION
  Report Type: 
  Country: US (occurrence: US)
  Receive Date: 20120727
  Receipt Date: 20120907
  Transmission Date: 20130627
  Serious: Yes (Other)
  Sender: FDA-Public Use
  Company Number: US-PFIZER INC-2012178462

PATIENT
  Sex: Female

DRUGS (4)
  1. LATANOPROST [Suspect]
     Indication: INTRAOCULAR PRESSURE INCREASED
     Dosage: 1 drop in each eye, 1x/day
  2. LATANOPROST [Suspect]
     Dosage: 1 drop in each eye, 1x/day
  3. LATANOPROST [Suspect]
     Dosage: UNK
  4. XALATAN [Suspect]
     Indication: INTRAOCULAR PRESSURE INCREASED
     Dosage: UNK

REACTIONS (3)
  - Lens disorder [Unknown]
  - Superficial injury of eye [Not Recovered/Not Resolved]
  - Foreign body sensation in eyes [Not Recovered/Not Resolved]
